FAERS Safety Report 7459792-X (Version None)
Quarter: 2011Q2

REPORT INFORMATION
  Report Type: 
  Country: None (occurrence: None)
  Receive Date: 20110505
  Receipt Date: 20110502
  Transmission Date: 20111010
  Serious: Yes (Other)
  Sender: FDA-Public Use
  Company Number: DE-PFIZER INC-2011093510

PATIENT
  Sex: Female

DRUGS (1)
  1. TREVILOR RETARD [Suspect]
     Dosage: 75 MG, UNK
     Route: 048

REACTIONS (3)
  - INTESTINAL RESECTION [None]
  - TREMOR [None]
  - GASTRIC BYPASS [None]
